FAERS Safety Report 22079317 (Version 1)
Quarter: 2023Q1

REPORT INFORMATION
  Report Type: Spontaneous
  Country: US (occurrence: None)
  Receive Date: 20230309
  Receipt Date: 20230309
  Transmission Date: 20230417
  Serious: No
  Sender: FDA-Public Use
  Company Number: 2023A052007

PATIENT
  Age: 48 Year
  Sex: Female
  Weight: 152.4 kg

DRUGS (1)
  1. TEZSPIRE [Suspect]
     Active Substance: TEZEPELUMAB-EKKO
     Indication: Asthma
     Route: 058

REACTIONS (3)
  - Pyrexia [Unknown]
  - Eosinophil count increased [Unknown]
  - Rash [Unknown]

NARRATIVE: CASE EVENT DATE: 20220906
